FAERS Safety Report 5441429-2 (Version None)
Quarter: 2007Q3

REPORT INFORMATION
  Report Type: 
  Country: None (occurrence: None)
  Receive Date: 20070828
  Receipt Date: 20070828
  Transmission Date: 20080115
  Serious: No
  Sender: FDA-Public Use
  Company Number: None

PATIENT
  Age: 49 Year
  Sex: Female

DRUGS (15)
  1. PROVIGIL [Suspect]
  2. CELEBREX [Concomitant]
  3. INDERAL [Concomitant]
  4. PREDNISONE [Concomitant]
  5. PROTONIX [Concomitant]
  6. CLORAZEPATE [Concomitant]
  7. IMURAN [Concomitant]
  8. FENTANYL [Concomitant]
  9. NASONEX [Concomitant]
  10. MARANOL [Concomitant]
  11. NYSTATIN [Concomitant]
  12. CYMBALTA [Concomitant]
  13. REQUIP [Concomitant]
  14. VICODIN [Concomitant]
  15. MECLIZINE [Concomitant]

REACTIONS (1)
  - TOXIC EPIDERMAL NECROLYSIS [None]
